FAERS Safety Report 12489931 (Version 3)
Quarter: 2016Q3

REPORT INFORMATION
  Report Type: Report from Study
  Country: BE (occurrence: BE)
  Receive Date: 20160622
  Receipt Date: 20160922
  Transmission Date: 20161109
  Serious: Yes (Hospitalization, Other)
  Sender: FDA-Public Use
  Company Number: BE-ABBVIE-15P-013-1516669-00

PATIENT
  Sex: Male

DRUGS (6)
  1. DUODOPA [Suspect]
     Active Substance: CARBIDOPA\LEVODOPA
     Indication: PARKINSON^S DISEASE
     Dosage: AM=7ML; CD=4.2ML/HR DURING 16HRS; ED = 4ML
     Route: 050
     Dates: start: 20110228, end: 20110303
  2. PROLOPA [Concomitant]
     Active Substance: BENSERAZIDE\LEVODOPA
     Dosage: DOSE STRENGTH: 100MG/ 25MG
  3. DUODOPA [Suspect]
     Active Substance: CARBIDOPA\LEVODOPA
     Dosage: AM=9ML; CD=4.2ML/HR DURING 16HRS; ED=4ML
     Route: 050
     Dates: start: 20150923, end: 20151202
  4. PROLOPA [Concomitant]
     Active Substance: BENSERAZIDE\LEVODOPA
     Indication: PRODUCT USED FOR UNKNOWN INDICATION
     Dosage: 100MG/25MG;0.5 TABLET 4X/DAY,7 TABLETS, DISSOLVED IN 500MLWATER, 50ML GIVEN EACH TIME
  5. DUODOPA [Suspect]
     Active Substance: CARBIDOPA\LEVODOPA
     Dosage: DOSES CONTINUOUSLY MONITORED AND ADAPTED
     Route: 050
     Dates: start: 20110303, end: 20150923
  6. DUODOPA [Suspect]
     Active Substance: CARBIDOPA\LEVODOPA
     Dosage: AM=9ML; CD=4.2ML/HR DURING 16HRS; ED=4ML
     Route: 050
     Dates: start: 20151202

REACTIONS (8)
  - Stress [Unknown]
  - General physical health deterioration [Unknown]
  - Stoma site hypergranulation [Recovered/Resolved]
  - Device occlusion [Recovered/Resolved]
  - Freezing phenomenon [Unknown]
  - Cognitive disorder [Unknown]
  - Dyskinesia [Not Recovered/Not Resolved]
  - Device leakage [Recovered/Resolved]
